FAERS Safety Report 5816339-9 (Version None)
Quarter: 2008Q3

REPORT INFORMATION
  Report Type: 
  Country: None (occurrence: None)
  Receive Date: 20080721
  Receipt Date: 20071207
  Transmission Date: 20090109
  Serious: No
  Sender: FDA-Public Use
  Company Number: US-BAUSCH-2007BL004468

PATIENT
  Age: 56 Year
  Sex: Male

DRUGS (3)
  1. OPCON-A [Suspect]
     Indication: EYE ALLERGY
     Route: 047
     Dates: start: 20071126, end: 20071128
  2. OPCON-A [Suspect]
     Indication: EYE PRURITUS
     Route: 047
     Dates: start: 20071126, end: 20071128
  3. OPCON-A [Suspect]
     Indication: EYE DISCHARGE
     Route: 047
     Dates: start: 20071126, end: 20071128

REACTIONS (4)
  - ABNORMAL SENSATION IN EYE [None]
  - DIPLOPIA [None]
  - EYE PAIN [None]
  - VISION BLURRED [None]
